FAERS Safety Report 12549174 (Version 1)
Quarter: 2016Q3

REPORT INFORMATION
  Report Type: Spontaneous
  Country: CH (occurrence: CH)
  Receive Date: 20160712
  Receipt Date: 20160712
  Transmission Date: 20161109
  Serious: Yes (Disabling)
  Sender: FDA-Public Use
  Company Number: CH-PFIZER INC-2016331859

PATIENT
  Age: 44 Year
  Sex: Female
  Weight: 71 kg

DRUGS (3)
  1. DEPO-MEDROL [Suspect]
     Active Substance: METHYLPREDNISOLONE ACETATE
     Indication: JOINT EFFUSION
     Dosage: 80 MG, UNK
     Dates: start: 201506, end: 201506
  2. DEPO-MEDROL [Suspect]
     Active Substance: METHYLPREDNISOLONE ACETATE
     Dosage: 80 MG, UNK
     Dates: start: 201507, end: 201507
  3. DEPO-MEDROL LIDOCAINE [Suspect]
     Active Substance: LIDOCAINE HYDROCHLORIDE\METHYLPREDNISOLONE ACETATE
     Indication: JOINT EFFUSION
     Dosage: 40 MG, UNK
     Dates: start: 201411, end: 201411

REACTIONS (1)
  - Chondrolysis [Not Recovered/Not Resolved]

NARRATIVE: CASE EVENT DATE: 201511
